FAERS Safety Report 9314483 (Version 2)
Quarter: 2013Q2

REPORT INFORMATION
  Report Type: Spontaneous
  Country: US (occurrence: US)
  Receive Date: 20130529
  Receipt Date: 20130620
  Transmission Date: 20140414
  Serious: No
  Sender: FDA-Public Use
  Company Number: US-PFIZER INC-2013144324

PATIENT
  Age: 79 Year
  Sex: Female
  Weight: 54.4 kg

DRUGS (3)
  1. PREMARIN [Suspect]
     Indication: BLADDER DISORDER
     Dosage: 1 G, 1X/DAY
     Route: 067
     Dates: start: 2013
  2. TRAMADOL HCL [Suspect]
     Indication: BACK PAIN
     Dosage: 50 MG, 1X/DAY
  3. METOPROLOL [Concomitant]
     Indication: TACHYCARDIA
     Dosage: 50 MG, 1X/DAY

REACTIONS (2)
  - Off label use [Unknown]
  - Glucose tolerance impaired [Unknown]
